FAERS Safety Report 15996095 (Version 2)
Quarter: 2019Q1

REPORT INFORMATION
  Report Type: Spontaneous
  Country: IR (occurrence: IR)
  Receive Date: 20190222
  Receipt Date: 20190313
  Transmission Date: 20190418
  Serious: Yes (Hospitalization, Other)
  Sender: FDA-Public Use
  Company Number: IR-SAKK-2018SA393842AA

PATIENT
  Age: 8 Year
  Sex: Male
  Weight: 13 kg

DRUGS (1)
  1. MYOZYME [Suspect]
     Active Substance: ALGLUCOSIDASE ALFA
     Indication: GLYCOGEN STORAGE DISEASE TYPE II
     Dosage: 20 MG/KG, UNK
     Route: 041
     Dates: start: 2013, end: 20181206

REACTIONS (3)
  - Hepatic enzyme increased [Unknown]
  - Abdominal pain upper [Unknown]
  - Respiratory failure [Recovered/Resolved]

NARRATIVE: CASE EVENT DATE: 2018
